FAERS Safety Report 6941040-8 (Version None)
Quarter: 2010Q3

REPORT INFORMATION
  Report Type: 
  Country: None (occurrence: None)
  Receive Date: 20100825
  Receipt Date: 20100820
  Transmission Date: 20110219
  Serious: Yes (Hospitalization)
  Sender: FDA-Public Use
  Company Number: Z0005279A

PATIENT
  Sex: Female
  Weight: 66 kg

DRUGS (3)
  1. ELTROMBOPAG [Suspect]
     Indication: IDIOPATHIC THROMBOCYTOPENIC PURPURA
     Route: 048
     Dates: start: 20100715
  2. ORPHENADRINE + PARACETAMOL [Concomitant]
     Dosage: 2TAB TWICE PER DAY
     Route: 048
     Dates: start: 20100807
  3. RANITIDINE [Concomitant]
     Indication: DYSPEPSIA
     Dosage: 1TAB TWICE PER DAY
     Route: 048
     Dates: start: 20100803

REACTIONS (1)
  - MUSCULOSKELETAL CHEST PAIN [None]
